FAERS Safety Report 17157804 (Version 1)
Quarter: 2019Q4

REPORT INFORMATION
  Report Type: Spontaneous
  Country: US (occurrence: US)
  Receive Date: 20191216
  Receipt Date: 20191216
  Transmission Date: 20200122
  Serious: No
  Sender: FDA-Public Use
  Company Number: US-ENDO PHARMACEUTICALS INC-2019-106631

PATIENT
  Sex: Male
  Weight: 97.51 kg

DRUGS (1)
  1. XIAFLEX [Suspect]
     Active Substance: COLLAGENASE CLOSTRIDIUM HISTOLYTICUM
     Indication: PEYRONIE^S DISEASE
     Dosage: UNK UNKNOWN, CYCLE 1, INJECTION 1 + 2
     Route: 065

REACTIONS (5)
  - Wrong technique in product usage process [Unknown]
  - Vascular injury [Unknown]
  - Penile haematoma [Recovered/Resolved]
  - Penile contusion [Recovered/Resolved]
  - Penile swelling [Recovered/Resolved]
